FAERS Safety Report 5737044-3 (Version None)
Quarter: 2008Q2

REPORT INFORMATION
  Report Type: 
  Country: None (occurrence: None)
  Receive Date: 20080512
  Receipt Date: 20080512
  Transmission Date: 20081010
  Serious: No
  Sender: FDA-Public Use
  Company Number: None

PATIENT
  Age: 26 Year
  Sex: Female

DRUGS (1)
  1. LEVAQUIN [Suspect]
     Indication: PNEUMONIA
     Dosage: 750MG IV X 1 DOSE
     Route: 042
     Dates: start: 20080326

REACTIONS (2)
  - ERYTHEMA [None]
  - PAIN IN EXTREMITY [None]
